FAERS Safety Report 9220485 (Version 1)
Quarter: 2013Q1

REPORT INFORMATION
  Report Type: Spontaneous
  Country: US (occurrence: None)
  Receive Date: 20120830
  Receipt Date: 20120830
  Transmission Date: 20140127
  Serious: Yes (Other)
  Sender: FDA-Public Use
  Company Number: PHEH2012US009354

PATIENT
  Age: 67 Year
  Sex: Female
  Weight: 106.8 kg

DRUGS (11)
  1. SANDOSTATIN LAR [Suspect]
     Indication: NEUROENDOCRINE CARCINOMA
     Dosage: QMO
     Route: 030
     Dates: start: 20081006
  2. NADOLOL (NADOLOL) [Concomitant]
  3. GLIMEPRIDE (GLIMEPRIDE) [Concomitant]
  4. MIRALAX [Concomitant]
  5. VITAMIN B NOS (VITAMIN B NOS) [Concomitant]
  6. VITAMIN D3 (COLECALCIFEROL) [Concomitant]
  7. COENZYME A (COENZYME A) [Concomitant]
  8. LIPITOR (ATORVASTATIN CALCIUM) [Concomitant]
  9. LISINOPRIL (LISINOPRIL) [Concomitant]
  10. CENTRUM SILVER (ASCORBIC ACID, CALCIUM, MINERALS NOS, RETINOL, TOCOPHERYL ACETATE, VITAMIN B NOS, VITAMINS NOS, ZINC) [Concomitant]
  11. FISH OIL (FISH OIL) [Suspect]

REACTIONS (3)
  - Neoplasm progression [None]
  - Blood chromogranin A increased [None]
  - Neoplasm malignant [None]
